FAERS Safety Report 10654664 (Version 1)
Quarter: 2014Q4

REPORT INFORMATION
  Report Type: Spontaneous
  Country: US (occurrence: None)
  Receive Date: 20141205
  Receipt Date: 20141205
  Transmission Date: 20150529
  Serious: Yes (Other)
  Sender: FDA-Public Use
  Company Number: 163-POMAL-14093522

PATIENT
  Age: 63 Year
  Sex: Female

DRUGS (4)
  1. POMALYST [Suspect]
     Active Substance: POMALIDOMIDE
     Indication: PRODUCT USED FOR UNKNOWN INDICATION
     Dosage: 09/10/2014 - TEMPORARILY INTERRUPTED
     Dates: start: 20140910
  2. ACYCLOVIR. [Concomitant]
     Active Substance: ACYCLOVIR
  3. AREDIA (PAMIDRONATE SODIUM) [Concomitant]
  4. IBUPROFEN. [Concomitant]
     Active Substance: IBUPROFEN

REACTIONS (10)
  - Dizziness [None]
  - Paraesthesia oral [None]
  - Nasal congestion [None]
  - Vision blurred [None]
  - Chills [None]
  - Asthenia [None]
  - Pyrexia [None]
  - Gait disturbance [None]
  - Headache [None]
  - Pain [None]

NARRATIVE: CASE EVENT DATE: 20140911
